FAERS Safety Report 16564327 (Version 1)
Quarter: 2019Q3

REPORT INFORMATION
  Report Type: Spontaneous
  Country: US (occurrence: US)
  Receive Date: 20190712
  Receipt Date: 20190712
  Transmission Date: 20191004
  Serious: No
  Sender: FDA-Public Use
  Company Number: US-GLAXOSMITHKLINE-US2019AMR123528

PATIENT
  Sex: Female
  Weight: 95.25 kg

DRUGS (2)
  1. AMLODIPINE BESILATE TABLET [Suspect]
     Active Substance: AMLODIPINE BESYLATE
     Indication: HYPERTENSION
     Dosage: 5 MG, QD
     Route: 048
     Dates: start: 201901
  2. DYAZIDE [Suspect]
     Active Substance: HYDROCHLOROTHIAZIDE\TRIAMTERENE
     Indication: HYPERTENSION
     Dosage: UNK
     Route: 065

REACTIONS (6)
  - Peripheral swelling [Unknown]
  - Oedema peripheral [Unknown]
  - Sensory disturbance [Unknown]
  - Drug ineffective [Unknown]
  - Paraesthesia [Unknown]
  - Pruritus [Unknown]
